FAERS Safety Report 8696622 (Version 2)
Quarter: 2012Q4

REPORT INFORMATION
  Report Type: 
  Country: US (occurrence: US)
  Receive Date: 20120801
  Receipt Date: 20121120
  Transmission Date: 20130627
  Serious: Yes (Hospitalization, Disabling, Other)
  Sender: FDA-Public Use
  Company Number: US-BAYER-2012-073870

PATIENT
  Age: 39 Year
  Sex: Female
  Weight: 86.17 kg

DRUGS (7)
  1. YASMIN [Suspect]
     Indication: CONTRACEPTION
     Dosage: UNK
     Dates: start: 2003, end: 2005
  2. YASMIN [Suspect]
     Indication: MENSTRUAL CYCLE MANAGEMENT
     Dosage: UNK
     Dates: start: 200910, end: 20110314
  3. ANTIBIOTICS [Concomitant]
  4. NSAID^S [Concomitant]
  5. VALTREX [Concomitant]
     Indication: COLD SORES
     Dosage: UNK
     Dates: start: 1995
  6. MOTRIN [Concomitant]
     Indication: PAIN
  7. IBUPROFEN [Concomitant]
     Indication: PAIN

REACTIONS (11)
  - Deep vein thrombosis [None]
  - Pulmonary embolism [Recovered/Resolved]
  - Embolism [None]
  - Pain [None]
  - Venous injury [None]
  - Injury [None]
  - Emotional distress [None]
  - Oedema peripheral [None]
  - Haemorrhage [None]
  - Toxicity to various agents [None]
  - Intra-abdominal haemorrhage [None]
